FAERS Safety Report 4342859-2 (Version None)
Quarter: 2004Q2

REPORT INFORMATION
  Report Type: 
  Country: None (occurrence: None)
  Receive Date: 20040420
  Receipt Date: 20040420
  Transmission Date: 20050107
  Serious: No
  Sender: FDA-Public Use
  Company Number: None

PATIENT
  Age: 57 Year
  Sex: Female
  Weight: 68.9467 kg

DRUGS (2)
  1. TEQUIN [Suspect]
     Indication: BRONCHITIS ACUTE
     Dosage: 200 MG QD PO
     Route: 048
     Dates: start: 20040406, end: 20040415
  2. COUMADIN [Suspect]
     Indication: MITRAL VALVE REPLACEMENT
     Dosage: 2.5 MG MON, 5MG 6X/WK PO
     Route: 048
     Dates: start: 20010101

REACTIONS (3)
  - BRONCHITIS ACUTE [None]
  - HERPES ZOSTER [None]
  - INTERNATIONAL NORMALISED RATIO INCREASED [None]
